FAERS Safety Report 8247173-0 (Version None)
Quarter: 2012Q1

REPORT INFORMATION
  Report Type: 
  Country: None (occurrence: None)
  Receive Date: 20120329
  Receipt Date: 20120329
  Transmission Date: 20120608
  Serious: No
  Sender: FDA-Public Use
  Company Number: None

PATIENT
  Age: 79 Year
  Sex: Female
  Weight: 72.1219 kg

DRUGS (1)
  1. TRIAZOLAM [Suspect]
     Indication: PAIN
     Dosage: 1 TABLET BEDTIME MOUTH
     Route: 048
     Dates: start: 19900101

REACTIONS (2)
  - PRODUCT QUALITY ISSUE [None]
  - DRUG INEFFECTIVE [None]
